FAERS Safety Report 23858366 (Version 4)
Quarter: 2024Q2

REPORT INFORMATION
  Report Type: Spontaneous
  Country: ES (occurrence: ES)
  Receive Date: 20240515
  Receipt Date: 20240620
  Transmission Date: 20240715
  Serious: Yes (Death, Other)
  Sender: FDA-Public Use
  Company Number: ES-SUN PHARMACEUTICAL INDUSTRIES LTD-2024RR-446365

PATIENT
  Age: 55 Year
  Sex: Male

DRUGS (7)
  1. TILDRAKIZUMAB [Suspect]
     Active Substance: TILDRAKIZUMAB
     Indication: Psoriasis
     Dosage: 200 MILLIGRAM
     Route: 065
     Dates: start: 20230323, end: 20240322
  2. TILDRAKIZUMAB [Suspect]
     Active Substance: TILDRAKIZUMAB
     Dosage: 200 MILLIGRAM
     Route: 058
     Dates: start: 20240322
  3. IXEKIZUMAB [Suspect]
     Active Substance: IXEKIZUMAB
     Indication: Product used for unknown indication
     Dosage: DOSE OF THE DRUG HAD RECENTLY BEEN INCREASED
     Route: 065
  4. PROPRANOLOL HYDROCHLORIDE [Concomitant]
     Active Substance: PROPRANOLOL HYDROCHLORIDE
     Indication: Arrhythmia
     Dosage: 10 MILLIGRAM
  5. METFORMIN CINFA [Concomitant]
     Indication: Type 2 diabetes mellitus
     Dosage: 425 MILLIGRAM, 1DOSE/12HOUR
     Route: 048
     Dates: start: 20210315
  6. ENSTILAR [Concomitant]
     Active Substance: BETAMETHASONE DIPROPIONATE\CALCIPOTRIENE HYDRATE
     Indication: Psoriasis
     Dosage: CUTANEOUS FOAM, 15 APPLICATIONS EVERY 24 HOURS
     Route: 061
     Dates: start: 20220316
  7. OMEPRAZOLE [Concomitant]
     Active Substance: DONEPEZIL HYDROCHLORIDE\OMEPRAZOLE\OMEPRAZOLE MAGNESIUM
     Indication: Oesophagitis
     Dosage: 20 MILLIGRAM, 1DOSE/12HOUR
     Route: 048
     Dates: start: 20230703

REACTIONS (4)
  - Cerebrovascular disorder [Fatal]
  - Haemorrhage intracranial [Fatal]
  - Cerebral haemorrhage [Fatal]
  - Intracranial haematoma [Fatal]

NARRATIVE: CASE EVENT DATE: 20240327
